FAERS Safety Report 6904356-7 (Version None)
Quarter: 2010Q3

REPORT INFORMATION
  Report Type: 
  Country: None (occurrence: None)
  Receive Date: 20100804
  Receipt Date: 20090505
  Transmission Date: 20110219
  Serious: No
  Sender: FDA-Public Use
  Company Number: US-PFIZER INC-2009182928

PATIENT
  Sex: Female

DRUGS (6)
  1. LYRICA [Suspect]
     Indication: FIBROMYALGIA
     Dosage: 50 MG, 3X/DAY
     Route: 048
     Dates: start: 20080701
  2. LYRICA [Suspect]
     Indication: ARTHRITIS
  3. RELAFEN [Suspect]
  4. PANTOPRAZOLE [Concomitant]
     Dosage: UNK
  5. ZOLOFT [Concomitant]
     Dosage: UNK
  6. ALLOPURINOL [Concomitant]
     Dosage: 300 MG, UNK

REACTIONS (2)
  - ALOPECIA [None]
  - RASH PRURITIC [None]
